FAERS Safety Report 8615570-7 (Version None)
Quarter: 2012Q3

REPORT INFORMATION
  Report Type: 
  Country: None (occurrence: None)
  Receive Date: 20120823
  Receipt Date: 20120817
  Transmission Date: 20120928
  Serious: Yes (Hospitalization, Other)
  Sender: FDA-Public Use
  Company Number: PHHY2010BR52145

PATIENT
  Sex: Female

DRUGS (3)
  1. DIOVAN HCT [Suspect]
     Indication: HYPERTENSION
     Dosage: 1 DF, QD
  2. DIOVAN HCT [Suspect]
     Dosage: ONE TABLET (160/25 MG) DAILY
  3. AMLODIPINE BESYLATE [Concomitant]
     Dosage: ONE TABLET (10 MG) DAILY

REACTIONS (10)
  - NERVOUSNESS [None]
  - VOMITING [None]
  - FALL [None]
  - BLOOD PRESSURE INCREASED [None]
  - BLOOD PRESSURE INADEQUATELY CONTROLLED [None]
  - DIZZINESS [None]
  - LIMB ASYMMETRY [None]
  - SCAR [None]
  - NECK PAIN [None]
  - CATARACT [None]
